FAERS Safety Report 11307468 (Version 2)
Quarter: 2018Q3

REPORT INFORMATION
  Report Type: Spontaneous
  Country: None (occurrence: CA)
  Receive Date: 20150723
  Receipt Date: 20180903
  Transmission Date: 20181010
  Serious: Yes (Hospitalization)
  Sender: FDA-Public Use
  Company Number: CA-FRI-1000078466

PATIENT
  Age: 35 Year
  Sex: Female
  Weight: 62 kg

DRUGS (4)
  1. IMURAN [Suspect]
     Active Substance: AZATHIOPRINE
     Indication: PRODUCT USED FOR UNKNOWN INDICATION
     Dosage: UNK
     Route: 065
  2. REMICADE [Suspect]
     Active Substance: INFLIXIMAB
     Indication: CROHN^S DISEASE
     Dosage: 300 MG, EVERY 8 WEEKS
     Route: 042
     Dates: start: 20140306
  3. CITALOPRAM HYDROBROMIDE ? BP [Suspect]
     Active Substance: CITALOPRAM HYDROBROMIDE
     Indication: PRODUCT USED FOR UNKNOWN INDICATION
     Dosage: UNK
     Route: 065
  4. FERROUS GLUCONATE [Concomitant]
     Active Substance: FERROUS GLUCONATE
     Dosage: UNK

REACTIONS (2)
  - Exposure during pregnancy [Unknown]
  - Caesarean section [Recovering/Resolving]

NARRATIVE: CASE EVENT DATE: 2014
